FAERS Safety Report 7051214 (Version 13)
Quarter: 2012Q4

REPORT INFORMATION
  Report Type: 
  Country: CA (occurrence: CA)
  Receive Date: 20090715
  Receipt Date: 20121113
  Transmission Date: 20130627
  Serious: Yes (Other)
  Sender: FDA-Public Use
  Company Number: PHHY2009CA28497

PATIENT
  Sex: Female

DRUGS (11)
  1. EXJADE [Suspect]
     Indication: MYELODYSPLASTIC SYNDROME
     Dosage: 2000 mg, UNK
     Route: 048
     Dates: start: 200802
  2. EXJADE [Suspect]
     Indication: IRON OVERLOAD
     Dosage: 2000 mg, QD
     Route: 048
     Dates: start: 20090716
  3. EXJADE [Suspect]
     Dosage: 2500 mg, QD
     Route: 048
     Dates: start: 20090616
  4. EXJADE [Suspect]
     Dosage: 2000 mg, QD
     Route: 048
  5. EXJADE [Suspect]
     Dosage: 2000 mg, UNK
     Route: 048
  6. EXJADE [Suspect]
     Dosage: 2000 mg, QD
     Route: 048
  7. DITROPAN [Concomitant]
     Indication: CYSTITIS
     Dosage: 10 mg, BID
     Route: 048
  8. PHENOBARBITAL [Concomitant]
     Indication: BRAIN NEOPLASM
     Dosage: 120 mg, BID
     Route: 048
  9. MACROLID [Concomitant]
     Route: 065
  10. CELEXA [Concomitant]
     Route: 065
  11. VITAMIN B12 [Concomitant]
     Dosage: 1000 mg, UNK

REACTIONS (16)
  - Bacterial infection [Unknown]
  - Weight decreased [Unknown]
  - Lower respiratory tract inflammation [Unknown]
  - Blood iron increased [Unknown]
  - Diarrhoea [Unknown]
  - Drug intolerance [Recovering/Resolving]
  - Urinary tract infection [Not Recovered/Not Resolved]
  - Cystitis [Recovering/Resolving]
  - Pain of skin [Recovering/Resolving]
  - Influenza [Unknown]
  - Faeces discoloured [Unknown]
  - Joint swelling [Unknown]
  - Constipation [Unknown]
  - Abdominal pain upper [Unknown]
  - Post procedural diarrhoea [Unknown]
  - Drug ineffective [Unknown]
